FAERS Safety Report 4915195-0 (Version None)
Quarter: 2006Q1

REPORT INFORMATION
  Report Type: 
  Country: None (occurrence: None)
  Receive Date: 20060216
  Receipt Date: 20060216
  Transmission Date: 20060701
  Serious: Yes (Hospitalization)
  Sender: FDA-Public Use
  Company Number: None

PATIENT
  Sex: Female

DRUGS (2)
  1. DILANTIN [Suspect]
     Indication: CONVULSION
     Dosage: UNKNOWN, PO PRIOR TO ADMISSION
     Route: 048
  2. DEPAKOTE [Concomitant]

REACTIONS (1)
  - CHEST PAIN [None]
